FAERS Safety Report 23415231 (Version 1)
Quarter: 2024Q1

REPORT INFORMATION
  Report Type: Spontaneous
  Country: FR (occurrence: FR)
  Receive Date: 20240118
  Receipt Date: 20240118
  Transmission Date: 20240410
  Serious: Yes (Other)
  Sender: FDA-Public Use
  Company Number: FR-AFSSAPS-TS2023001179

PATIENT
  Age: 1 Day
  Sex: Female
  Weight: 2.6 kg

DRUGS (1)
  1. MORPHINE [Suspect]
     Active Substance: MORPHINE
     Indication: Analgesic therapy
     Dosage: 780 MCG, UNK
     Route: 040
     Dates: start: 20230914, end: 20230914

REACTIONS (5)
  - Urinary retention [Recovered/Resolved]
  - Neonatal hypoxia [Recovered/Resolved]
  - Hypotension [Recovered/Resolved]
  - Wrong rate [Recovered/Resolved]
  - Miosis [Recovered/Resolved]

NARRATIVE: CASE EVENT DATE: 20230914
